FAERS Safety Report 21596687 (Version 2)
Quarter: 2022Q4

REPORT INFORMATION
  Report Type: Spontaneous
  Country: IQ (occurrence: IQ)
  Receive Date: 20221115
  Receipt Date: 20221130
  Transmission Date: 20230112
  Serious: Yes (Death, Hospitalization, Congenital Anomaly, Other)
  Sender: FDA-Public Use
  Company Number: IQ-SA-SAC20221114000754

PATIENT
  Age: 11 Month
  Sex: Female
  Weight: 6 kg

DRUGS (1)
  1. MYOZYME [Suspect]
     Active Substance: ALGLUCOSIDASE ALFA
     Indication: Glycogen storage disease type II
     Dosage: 100 MG, QOW
     Route: 041
     Dates: start: 20220901, end: 20221025

REACTIONS (2)
  - Respiratory failure [Fatal]
  - Cardiac failure [Fatal]
